FAERS Safety Report 18051969 (Version 2)
Quarter: 2020Q3

REPORT INFORMATION
  Report Type: Report from Study
  Country: DE (occurrence: DE)
  Receive Date: 20200722
  Receipt Date: 20200810
  Transmission Date: 20201103
  Serious: Yes (Hospitalization, Other)
  Sender: FDA-Public Use
  Company Number: DE-BRISTOL-MYERS SQUIBB COMPANY-BMS-2020-057263

PATIENT
  Age: 56 Year
  Sex: Male
  Weight: 99.5 kg

DRUGS (6)
  1. IPILIMUMAB [Suspect]
     Active Substance: IPILIMUMAB
     Indication: ADENOCARCINOMA METASTATIC
     Dosage: 102 MILLIGRAM
     Route: 065
     Dates: start: 20200330
  2. LEUCOVORIN CALCIUM. [Suspect]
     Active Substance: LEUCOVORIN CALCIUM
     Indication: ADENOCARCINOMA METASTATIC
     Dosage: 669 MILLIGRAM
     Route: 065
  3. FLUOROURACIL. [Suspect]
     Active Substance: FLUOROURACIL
     Dosage: 4460 MILLIGRAM
     Route: 042
  4. NIVOLUMAB [Suspect]
     Active Substance: NIVOLUMAB
     Indication: ADENOCARCINOMA METASTATIC
     Dosage: 240 MILLIGRAM
     Route: 065
     Dates: start: 20200629
  5. FLUOROURACIL. [Suspect]
     Active Substance: FLUOROURACIL
     Indication: ADENOCARCINOMA METASTATIC
     Dosage: 669 MILLIGRAM
     Route: 040
  6. OXALIPLATIN. [Suspect]
     Active Substance: OXALIPLATIN
     Indication: ADENOCARCINOMA METASTATIC
     Dosage: 192.95 MILLIGRAM
     Route: 065

REACTIONS (1)
  - Embolism [Recovered/Resolved]

NARRATIVE: CASE EVENT DATE: 20200715
